FAERS Safety Report 7788153-9 (Version None)
Quarter: 2011Q3

REPORT INFORMATION
  Report Type: 
  Country: None (occurrence: None)
  Receive Date: 20110929
  Receipt Date: 20110929
  Transmission Date: 20111222
  Serious: Yes (Other)
  Sender: FDA-Public Use
  Company Number: None

PATIENT
  Age: 38 Year
  Sex: Male
  Weight: 71.4 kg

DRUGS (3)
  1. LENALIDOMIDE [Suspect]
     Indication: NON-HODGKIN'S LYMPHOMA
     Dosage: 20MG QD X 21 DAYS ORAL
     Route: 048
     Dates: start: 20110214, end: 20110403
  2. LAP CHOLECYSTECTOMY [Concomitant]
  3. LIVER BIOPSY [Concomitant]

REACTIONS (4)
  - GALLBLADDER DISORDER [None]
  - CHOLELITHIASIS [None]
  - HEPATITIS ACUTE [None]
  - DEHYDRATION [None]
